FAERS Safety Report 9455710 (Version 1)
Quarter: 2013Q3

REPORT INFORMATION
  Report Type: Spontaneous
  Country: DE (occurrence: DE)
  Receive Date: 20130813
  Receipt Date: 20130813
  Transmission Date: 20140515
  Serious: Yes (Other)
  Sender: FDA-Public Use
  Company Number: DE-BAYER-2013-094930

PATIENT
  Age: 33 Year
  Sex: Male
  Weight: 96.15 kg

DRUGS (3)
  1. BETAFERON [Suspect]
     Indication: PROGRESSIVE RELAPSING MULTIPLE SCLEROSIS
     Dosage: UNK
     Route: 058
     Dates: start: 201301, end: 201304
  2. L-THYROXIN [Concomitant]
     Dosage: 50 ?G, UNK
     Route: 048
  3. ATORVASTATIN [Concomitant]
     Dosage: 40 MG, UNK
     Route: 048

REACTIONS (2)
  - Liver function test abnormal [None]
  - Multiple sclerosis relapse [None]
